FAERS Safety Report 9419343 (Version 1)
Quarter: 2013Q3

REPORT INFORMATION
  Report Type: Spontaneous
  Country: US (occurrence: US)
  Receive Date: 20130725
  Receipt Date: 20130725
  Transmission Date: 20140515
  Serious: No
  Sender: FDA-Public Use
  Company Number: US-GLAXOSMITHKLINE-A1016858A

PATIENT
  Age: 50 Year
  Sex: Female

DRUGS (4)
  1. LAMICTAL XR [Suspect]
     Indication: CONVULSION
     Dosage: 200MG PER DAY
     Route: 048
  2. IBUPROFEN [Concomitant]
  3. NASAL SPRAY [Concomitant]
  4. ANTIBIOTIC [Concomitant]

REACTIONS (1)
  - Drug level decreased [Not Recovered/Not Resolved]
